FAERS Safety Report 5511902-7 (Version None)
Quarter: 2007Q4

REPORT INFORMATION
  Report Type: 
  Country: None (occurrence: None)
  Receive Date: 20071109
  Receipt Date: 20071030
  Transmission Date: 20080405
  Serious: Yes (Death, Other)
  Sender: FDA-Public Use
  Company Number: US-PFIZER INC-2007091476

PATIENT

DRUGS (2)
  1. ALPRAZOLAM [Suspect]
  2. ALPRAZOLAM EXTENDED-RELEASE [Suspect]

REACTIONS (2)
  - DEATH [None]
  - DRUG EXPOSURE DURING PREGNANCY [None]
